FAERS Safety Report 23626933 (Version 4)
Quarter: 2024Q4

REPORT INFORMATION
  Report Type: Spontaneous
  Country: US (occurrence: US)
  Receive Date: 20240313
  Receipt Date: 20241218
  Transmission Date: 20250114
  Serious: Yes (Hospitalization, Other)
  Sender: PFIZER
  Company Number: US-PFIZER INC-202300251740

PATIENT
  Age: 85 Year
  Sex: Male
  Weight: 72.57 kg

DRUGS (3)
  1. VYNDAMAX [Suspect]
     Active Substance: TAFAMIDIS
     Indication: Amyloidosis
     Dosage: 61MG CAPSULE ONCE A DAY AT NIGHT BEFORE BED BY MOUTH
     Route: 048
  2. VYNDAMAX [Suspect]
     Active Substance: TAFAMIDIS
     Indication: Acquired ATTR amyloidosis
  3. VITAMIN B12 [Concomitant]
     Active Substance: CYANOCOBALAMIN
     Indication: Red blood cell count decreased
     Dosage: UNK

REACTIONS (11)
  - Cerebrovascular accident [Unknown]
  - Maculopathy [Unknown]
  - Cardioversion [Unknown]
  - Shock [Recovering/Resolving]
  - Visual impairment [Unknown]
  - Speech disorder [Unknown]
  - Dysgraphia [Unknown]
  - Memory impairment [Unknown]
  - Pain in extremity [Unknown]
  - Myalgia [Unknown]
  - Malaise [Unknown]

NARRATIVE: CASE EVENT DATE: 20240623
